FAERS Safety Report 15893559 (Version 2)
Quarter: 2019Q1

REPORT INFORMATION
  Report Type: Spontaneous
  Country: BE (occurrence: BE)
  Receive Date: 20190131
  Receipt Date: 20190208
  Transmission Date: 20190417
  Serious: Yes (Hospitalization)
  Sender: FDA-Public Use
  Company Number: BE-STRIDES ARCOLAB LIMITED-2019SP000858

PATIENT
  Sex: Male
  Weight: 3 kg

DRUGS (6)
  1. ROPIVACAINE. [Suspect]
     Active Substance: ROPIVACAINE HYDROCHLORIDE
     Indication: PRODUCT USED FOR UNKNOWN INDICATION
     Dosage: UNK (MATERNAL DOSE: 100 MG)
     Route: 064
  2. SUFENTANIL [Suspect]
     Active Substance: SUFENTANIL
     Indication: PRODUCT USED FOR UNKNOWN INDICATION
     Dosage: UNK (MATERNAL DOSE: BOLUS ANAESTHESIA EVERY 20 MINUTE-25A?G)
     Route: 064
  3. SODIUM CHLORIDE. [Suspect]
     Active Substance: SODIUM CHLORIDE
     Indication: PRODUCT USED FOR UNKNOWN INDICATION
     Dosage: UNK (MATERNAL DOSE: 0.9 % SODIUM CHLORIDE UP TO 50ML)
     Route: 064
  4. LIDOCAINE. [Suspect]
     Active Substance: LIDOCAINE
     Indication: PRODUCT USED FOR UNKNOWN INDICATION
     Dosage: UNK (MATERNAL DOSE-10ML OF 2% LIDOCAINE)
     Route: 064
  5. EPINEPHRINE. [Suspect]
     Active Substance: EPINEPHRINE
     Indication: PRODUCT USED FOR UNKNOWN INDICATION
     Dosage: UNK (MATERNAL DOSE: 1/200000 EPINEPHRINE 4ML)
     Route: 064
  6. LIDOCAINE. [Suspect]
     Active Substance: LIDOCAINE
     Dosage: UNK (MATERNAL DOSE-20ML OF 2% EPIDURAL LIDOCAINE)
     Route: 064

REACTIONS (10)
  - Pallor [Recovered/Resolved]
  - Apnoea [Recovered/Resolved]
  - Mydriasis [Recovered/Resolved]
  - Toxicity to various agents [Unknown]
  - Muscle contractions involuntary [Recovered/Resolved]
  - Heart rate decreased [Recovered/Resolved]
  - Foetal exposure during pregnancy [Unknown]
  - Hypotension [Recovered/Resolved]
  - Hypotonia neonatal [Recovered/Resolved]
  - Tonic convulsion [Recovered/Resolved]
